FAERS Safety Report 16723057 (Version 1)
Quarter: 2019Q3

REPORT INFORMATION
  Report Type: Spontaneous
  Country: HR (occurrence: HR)
  Receive Date: 20190821
  Receipt Date: 20190821
  Transmission Date: 20191005
  Serious: Yes (Hospitalization)
  Sender: FDA-Public Use
  Company Number: HR-TEVA-2019-HR-1093680

PATIENT
  Age: 20 Year
  Sex: Female

DRUGS (1)
  1. AMOXICILLIN W/CLAVULANIC ACID [Suspect]
     Active Substance: AMOXICILLIN\CLAVULANIC ACID
     Indication: ANTIBIOTIC THERAPY
     Route: 065

REACTIONS (9)
  - Tongue oedema [Unknown]
  - Perioral dermatitis [Unknown]
  - Dysphagia [Unknown]
  - Pyrexia [Unknown]
  - Stevens-Johnson syndrome [Unknown]
  - Conjunctivitis [Unknown]
  - Dyspnoea [Unknown]
  - Gingival oedema [Unknown]
  - Urticaria [Unknown]
